FAERS Safety Report 5737351-4 (Version None)
Quarter: 2008Q2

REPORT INFORMATION
  Report Type: 
  Country: None (occurrence: None)
  Receive Date: 20080514
  Receipt Date: 20080407
  Transmission Date: 20081010
  Serious: No
  Sender: FDA-Public Use
  Company Number: US-BRISTOL-MYERS SQUIBB COMPANY-13995501

PATIENT
  Age: 58 Year
  Sex: Female

DRUGS (3)
  1. IXEMPRA KIT [Suspect]
     Indication: BREAST CANCER METASTATIC
     Dosage: 40 MG/M2
     Route: 042
     Dates: start: 20071113
  2. AVASTIN [Suspect]
     Route: 042
     Dates: start: 20071120
  3. NEUPOGEN [Suspect]
     Dosage: 1DF=900MCG-600MCG IN MULTILE DATES
     Route: 058
     Dates: start: 20071120

REACTIONS (1)
  - DYSPNOEA [None]
